FAERS Safety Report 20741678 (Version 2)
Quarter: 2022Q2

REPORT INFORMATION
  Report Type: Report from Study
  Country: RO (occurrence: RO)
  Receive Date: 20220422
  Receipt Date: 20220511
  Transmission Date: 20220721
  Serious: Yes (Death, Hospitalization)
  Sender: FDA-Public Use
  Company Number: RO-ABBVIE-22K-135-4366187-00

PATIENT
  Age: 65 Year
  Sex: Female

DRUGS (2)
  1. CARBIDOPA\LEVODOPA [Suspect]
     Active Substance: CARBIDOPA\LEVODOPA
     Indication: Parkinson^s disease
     Dosage: DM=3.00 DC=2.50 ED=1.00 NRED=1; DMN=0.00 DCN=2.20 EDN=2.20 NREDN=0
     Route: 050
     Dates: start: 20150901, end: 20220505
  2. CARBIDOPA\LEVODOPA [Suspect]
     Active Substance: CARBIDOPA\LEVODOPA

REACTIONS (2)
  - Coma [Fatal]
  - Sepsis [Fatal]

NARRATIVE: CASE EVENT DATE: 20220419
